FAERS Safety Report 15537863 (Version 2)
Quarter: 2018Q4

REPORT INFORMATION
  Report Type: Report from Study
  Country: BR (occurrence: BR)
  Receive Date: 20181022
  Receipt Date: 20181024
  Transmission Date: 20190205
  Serious: Yes (Death, Other)
  Sender: FDA-Public Use
  Company Number: PHHY2018BR133094

PATIENT
  Sex: Male
  Weight: 50 kg

DRUGS (3)
  1. TAGRISSO [Concomitant]
     Active Substance: OSIMERTINIB
     Indication: LUNG NEOPLASM MALIGNANT
     Dosage: UNK
     Route: 065
     Dates: start: 2017
  2. EXELON PATCH [Suspect]
     Active Substance: RIVASTIGMINE
     Indication: TREMOR
  3. EXELON PATCH [Suspect]
     Active Substance: RIVASTIGMINE
     Indication: MEMORY IMPAIRMENT
     Dosage: 1 DF, QD (ALTERNATING THE SITES ON THE BACK) (3 MONTHS AGO)
     Route: 062

REACTIONS (4)
  - Productive cough [Unknown]
  - Cough [Unknown]
  - Product use in unapproved indication [Unknown]
  - Asphyxia [Fatal]
